FAERS Safety Report 10392818 (Version 2)
Quarter: 2014Q3

REPORT INFORMATION
  Report Type: Spontaneous
  Country: BR (occurrence: BR)
  Receive Date: 20140819
  Receipt Date: 20140819
  Transmission Date: 20150326
  Serious: Yes (Hospitalization)
  Sender: FDA-Public Use
  Company Number: BR-JNJFOC-20140503583

PATIENT
  Age: 75 Year
  Sex: Male
  Weight: 60 kg

DRUGS (4)
  1. ZYTIGA [Suspect]
     Active Substance: ABIRATERONE ACETATE
     Indication: PROSTATE CANCER
     Route: 048
     Dates: end: 20140730
  2. PREDNISONE. [Concomitant]
     Active Substance: PREDNISONE
     Indication: PRODUCT USED FOR UNKNOWN INDICATION
     Route: 065
  3. PREDNISONE. [Concomitant]
     Active Substance: PREDNISONE
     Indication: PRODUCT USED FOR UNKNOWN INDICATION
     Route: 065
  4. ZYTIGA [Suspect]
     Active Substance: ABIRATERONE ACETATE
     Indication: PROSTATE CANCER
     Dosage: 4 DOSAGES PER DAY
     Route: 048
     Dates: start: 20140320, end: 20140502

REACTIONS (9)
  - Haematocrit abnormal [Unknown]
  - Rash erythematous [Not Recovered/Not Resolved]
  - Blood sodium abnormal [Unknown]
  - Drug ineffective [Unknown]
  - Kidney infection [Unknown]
  - Laboratory test abnormal [Unknown]
  - Blood glucose abnormal [Unknown]
  - Pruritus generalised [Not Recovered/Not Resolved]
  - Ureteral catheterisation [Recovered/Resolved]

NARRATIVE: CASE EVENT DATE: 20140713
